FAERS Safety Report 5751799-3 (Version None)
Quarter: 2008Q2

REPORT INFORMATION
  Report Type: 
  Country: None (occurrence: None)
  Receive Date: 20080527
  Receipt Date: 20080514
  Transmission Date: 20081010
  Serious: Yes (Other)
  Sender: FDA-Public Use
  Company Number: 2008SP006014

PATIENT
  Age: 82 Year
  Sex: Male
  Weight: 56.6996 kg

DRUGS (3)
  1. CLARITIN-D 24 HOUR [Suspect]
     Indication: COUGH
     Dosage: 10 MG; QD; PO
     Route: 048
     Dates: start: 20080301, end: 20080301
  2. CLARITIN-D 24 HOUR [Suspect]
     Indication: RHINORRHOEA
     Dosage: 10 MG; QD; PO
     Route: 048
     Dates: start: 20080301, end: 20080301
  3. CLARITIN-D 24 HOUR [Suspect]
     Indication: SINUS DISORDER
     Dosage: 10 MG; QD; PO
     Route: 048
     Dates: start: 20080301, end: 20080301

REACTIONS (1)
  - URINARY RETENTION [None]
